FAERS Safety Report 6787777-5 (Version None)
Quarter: 2010Q2

REPORT INFORMATION
  Report Type: 
  Country: None (occurrence: None)
  Receive Date: 20100623
  Receipt Date: 20071022
  Transmission Date: 20101027
  Serious: Yes (Other)
  Sender: FDA-Public Use
  Company Number: US-PFIZER INC-2007060079

PATIENT
  Sex: Female
  Weight: 49 kg

DRUGS (2)
  1. DEPO-SUBQ PROVERA 104 [Suspect]
     Indication: MENSTRUAL DISCOMFORT
     Dosage: INJECTION
     Route: 058
     Dates: start: 20070102, end: 20070102
  2. DEPO-SUBQ PROVERA 104 [Suspect]
     Indication: CONTRACEPTION
     Dosage: LAST INJECTION
     Route: 058
     Dates: start: 20070201, end: 20070201

REACTIONS (3)
  - DYSMENORRHOEA [None]
  - INCORRECT ROUTE OF DRUG ADMINISTRATION [None]
  - INJECTION SITE NECROSIS [None]
